FAERS Safety Report 11259697 (Version 1)
Quarter: 2015Q3

REPORT INFORMATION
  Report Type: Spontaneous
  Country: CA (occurrence: CA)
  Receive Date: 20150710
  Receipt Date: 20150710
  Transmission Date: 20151125
  Serious: Yes (Other)
  Sender: FDA-Public Use
  Company Number: PHHY2015CA081321

PATIENT
  Age: 19 Year
  Sex: Male
  Weight: 158.7 kg

DRUGS (5)
  1. CITALOPRAM [Suspect]
     Active Substance: CITALOPRAM HYDROBROMIDE
     Indication: DEPRESSION
     Dosage: 40 MG, QD
     Route: 065
     Dates: start: 200709
  2. NORTRIPTYLINE [Interacting]
     Active Substance: NORTRIPTYLINE
     Indication: NEURALGIA
  3. NORTRIPTYLINE [Interacting]
     Active Substance: NORTRIPTYLINE
     Indication: DEPRESSION
     Dosage: 25 MG, TID
     Route: 065
     Dates: start: 200707
  4. OXYCONTIN [Interacting]
     Active Substance: OXYCODONE HYDROCHLORIDE
     Indication: NEURALGIA
     Dosage: 40 MG,1-2 TABLET TWICE DAILY
     Route: 065
     Dates: start: 200707
  5. MELATONIN [Interacting]
     Active Substance: MELATONIN
     Indication: SLEEP PHASE RHYTHM DISTURBANCE
     Dosage: 3 MG, QD
     Route: 065
     Dates: end: 200801

REACTIONS (4)
  - Sedation [Recovered/Resolved]
  - Activities of daily living impaired [Unknown]
  - Drug interaction [Unknown]
  - Disturbance in attention [Unknown]

NARRATIVE: CASE EVENT DATE: 200711
